FAERS Safety Report 5043083-0 (Version None)
Quarter: 2006Q3

REPORT INFORMATION
  Report Type: 
  Country: None (occurrence: None)
  Receive Date: 20060705
  Receipt Date: 20060626
  Transmission Date: 20061208
  Serious: Yes (Life-Threatening)
  Sender: FDA-Public Use
  Company Number: PL-AVENTIS-200616740GDDC

PATIENT
  Age: 83 Year
  Sex: Female

DRUGS (1)
  1. LANTUS [Suspect]
     Route: 058
     Dates: start: 20060621, end: 20060626

REACTIONS (4)
  - BLOOD GLUCOSE INCREASED [None]
  - DYSGEUSIA [None]
  - HEPATIC PAIN [None]
  - SOMNOLENCE [None]
